FAERS Safety Report 5311916-6 (Version None)
Quarter: 2007Q2

REPORT INFORMATION
  Report Type: 
  Country: None (occurrence: None)
  Receive Date: 20070430
  Receipt Date: 20060424
  Transmission Date: 20071010
  Serious: No
  Sender: FDA-Public Use
  Company Number: 2006UW07244

PATIENT
  Age: 83 Year
  Sex: Female
  Weight: 73.9 kg

DRUGS (3)
  1. NEXIUM [Suspect]
     Indication: PROPHYLAXIS
     Route: 048
     Dates: start: 20060419, end: 20060422
  2. LOTENSIN [Concomitant]
  3. TOPROL-XL [Concomitant]
     Route: 048

REACTIONS (4)
  - ABNORMAL SENSATION IN EYE [None]
  - DYSPHAGIA [None]
  - PARAESTHESIA ORAL [None]
  - PHARYNGEAL OEDEMA [None]
